FAERS Safety Report 6073295-9 (Version None)
Quarter: 2009Q1

REPORT INFORMATION
  Report Type: 
  Country: None (occurrence: None)
  Receive Date: 20090206
  Receipt Date: 20090122
  Transmission Date: 20090719
  Serious: Yes (Hospitalization)
  Sender: FDA-Public Use
  Company Number: 2009S1001345

PATIENT
  Age: 66 Year
  Sex: Female

DRUGS (4)
  1. PAROXETINE HCL [Suspect]
     Indication: MAJOR DEPRESSION
     Dosage: 20 MG; DAILY; ORAL, 40 MG; DAILY; ORAL, 50 MG; DAILY; ORAL, 40 MG; DAILY; ORAL
     Route: 048
  2. PAROXETINE HCL [Suspect]
     Indication: MAJOR DEPRESSION
     Dosage: 20 MG; DAILY; ORAL, 40 MG; DAILY; ORAL, 50 MG; DAILY; ORAL, 40 MG; DAILY; ORAL
     Route: 048
  3. PAROXETINE HCL [Suspect]
     Indication: MAJOR DEPRESSION
     Dosage: 20 MG; DAILY; ORAL, 40 MG; DAILY; ORAL, 50 MG; DAILY; ORAL, 40 MG; DAILY; ORAL
     Route: 048
  4. LIMAPROST [Concomitant]

REACTIONS (2)
  - CONJUNCTIVAL HAEMORRHAGE [None]
  - EPISTAXIS [None]
